FAERS Safety Report 8778876 (Version 2)
Quarter: 2012Q4

REPORT INFORMATION
  Report Type: 
  Country: DE (occurrence: DE)
  Receive Date: 20120912
  Receipt Date: 20121011
  Transmission Date: 20130627
  Serious: Yes (Hospitalization, Other)
  Sender: FDA-Public Use
  Company Number: PHHY2012DE078232

PATIENT
  Age: 35 Year
  Sex: Male
  Weight: 92 kg

DRUGS (1)
  1. FTY [Suspect]
     Indication: RELAPSING-REMITTING MULTIPLE SCLEROSIS
     Dosage: 0.5 mg, QD
     Route: 048
     Dates: start: 20111215

REACTIONS (2)
  - Atrial fibrillation [Recovered/Resolved]
  - Multiple sclerosis relapse [Unknown]
